FAERS Safety Report 10956587 (Version 1)
Quarter: 2015Q1

REPORT INFORMATION
  Report Type: Spontaneous
  Country: IT (occurrence: IT)
  Receive Date: 20150326
  Receipt Date: 20150326
  Transmission Date: 20150721
  Serious: Yes (Other)
  Sender: FDA-Public Use
  Company Number: IT-MYLANLABS-2015M1009589

PATIENT

DRUGS (12)
  1. RITONAVIR. [Suspect]
     Active Substance: RITONAVIR
     Route: 065
  2. PROPRANOLOL [Concomitant]
     Active Substance: PROPRANOLOL\PROPRANOLOL HYDROCHLORIDE
     Route: 065
  3. FOSAMPRENAVIR [Suspect]
     Active Substance: FOSAMPRENAVIR
     Route: 065
  4. OMEGA-3 FATTY ACIDS [Concomitant]
     Active Substance: OMEGA-3 FATTY ACIDS
     Route: 065
  5. LAMIVUDINE. [Suspect]
     Active Substance: LAMIVUDINE
     Route: 065
  6. URSODEOXYCHOLIC ACID [Concomitant]
     Active Substance: URSODIOL
     Route: 065
  7. RALTEGRAVIR [Suspect]
     Active Substance: RALTEGRAVIR
     Route: 065
  8. TENOFOVIR [Suspect]
     Active Substance: TENOFOVIR
     Route: 065
  9. ZIDOVUDINE. [Suspect]
     Active Substance: ZIDOVUDINE
     Route: 065
  10. ETRAVIRINE [Suspect]
     Active Substance: ETRAVIRINE
     Route: 065
  11. EMTRICITABINE [Suspect]
     Active Substance: EMTRICITABINE
     Route: 065
  12. TACROLIMUS. [Concomitant]
     Active Substance: TACROLIMUS
     Indication: IMMUNOSUPPRESSANT DRUG THERAPY
     Dosage: 0.5MG/10DAYS
     Route: 065

REACTIONS (1)
  - Bone marrow toxicity [Unknown]
